FAERS Safety Report 8520856-0 (Version None)
Quarter: 2012Q3

REPORT INFORMATION
  Report Type: 
  Country: None (occurrence: None)
  Receive Date: 20120719
  Receipt Date: 20120710
  Transmission Date: 20120928
  Serious: Yes (Hospitalization, Other)
  Sender: FDA-Public Use
  Company Number: DE-JNJFOC-20120605859

PATIENT
  Sex: Female
  Weight: 75 kg

DRUGS (10)
  1. XARELTO [Suspect]
     Route: 048
     Dates: start: 20120129, end: 20120129
  2. XARELTO [Suspect]
     Indication: CEREBROVASCULAR ACCIDENT PROPHYLAXIS
     Route: 048
     Dates: start: 20120316, end: 20120316
  3. PANTOPRAZOLE [Concomitant]
  4. CITALOPRAM HYDROBROMIDE [Concomitant]
  5. ALLOPURINOL [Concomitant]
  6. CONCOR [Concomitant]
  7. XARELTO [Suspect]
     Route: 048
     Dates: start: 20120129, end: 20120129
  8. METFORMIN HYDROCHLORIDE [Concomitant]
  9. ASPIRIN [Concomitant]
     Dates: start: 20120301
  10. XARELTO [Suspect]
     Indication: ATRIAL FIBRILLATION
     Route: 048
     Dates: start: 20120316, end: 20120316

REACTIONS (3)
  - CEREBROVASCULAR ACCIDENT [None]
  - CONVULSION [None]
  - BLOOD PRESSURE DECREASED [None]
